FAERS Safety Report 8182456-4 (Version None)
Quarter: 2012Q1

REPORT INFORMATION
  Report Type: 
  Country: None (occurrence: None)
  Receive Date: 20120305
  Receipt Date: 20120228
  Transmission Date: 20120608
  Serious: Yes (Hospitalization)
  Sender: FDA-Public Use
  Company Number: US-BIOGENIDEC-2012BI006654

PATIENT
  Age: 39 Year
  Sex: Male

DRUGS (2)
  1. BACTRIM [Concomitant]
  2. TYSABRI [Suspect]
     Indication: MULTIPLE SCLEROSIS
     Route: 042
     Dates: start: 20091118

REACTIONS (1)
  - STEVENS-JOHNSON SYNDROME [None]
